FAERS Safety Report 5597538-0 (Version None)
Quarter: 2008Q1

REPORT INFORMATION
  Report Type: 
  Country: None (occurrence: None)
  Receive Date: 20080121
  Receipt Date: 20080109
  Transmission Date: 20080703
  Serious: Yes (Life-Threatening)
  Sender: FDA-Public Use
  Company Number: FR-ROCHE-540618

PATIENT
  Age: 69 Year
  Sex: Male

DRUGS (1)
  1. ROCEPHIN [Suspect]
     Route: 065
     Dates: start: 20071101, end: 20071105

REACTIONS (1)
  - TOXIC EPIDERMAL NECROLYSIS [None]
